FAERS Safety Report 11883764 (Version 5)
Quarter: 2016Q2

REPORT INFORMATION
  Report Type: Report from Study
  Country: US (occurrence: US)
  Receive Date: 20160101
  Receipt Date: 20160509
  Transmission Date: 20160815
  Serious: No
  Sender: FDA-Public Use
  Company Number: US-AMGEN-USASL2015139647

PATIENT
  Age: 39 Year
  Sex: Female

DRUGS (1)
  1. ENBREL [Suspect]
     Active Substance: ETANERCEPT
     Indication: RHEUMATOID ARTHRITIS
     Dosage: 50 MG, ONCE WEEKLY
     Route: 065
     Dates: start: 20151222, end: 201602

REACTIONS (12)
  - Claustrophobia [Recovered/Resolved]
  - Pain [Unknown]
  - Swelling face [Recovered/Resolved]
  - Infection [Unknown]
  - Sinus headache [Recovering/Resolving]
  - Dry throat [Not Recovered/Not Resolved]
  - Pharyngeal oedema [Recovered/Resolved]
  - Malaise [Not Recovered/Not Resolved]
  - Chills [Unknown]
  - Pyrexia [Unknown]
  - Back pain [Unknown]
  - Hyperhidrosis [Not Recovered/Not Resolved]

NARRATIVE: CASE EVENT DATE: 2015
